FAERS Safety Report 6878175-4 (Version None)
Quarter: 2010Q3

REPORT INFORMATION
  Report Type: 
  Country: None (occurrence: None)
  Receive Date: 20100728
  Receipt Date: 20100715
  Transmission Date: 20110219
  Serious: Yes (Hospitalization, Other)
  Sender: FDA-Public Use
  Company Number: IT-PFIZER INC-2010064619

PATIENT
  Age: 48 Year
  Sex: Female

DRUGS (1)
  1. LINCOCIN [Suspect]
     Indication: INFECTION
     Dosage: 1 UNIT, TOTAL
     Route: 004
     Dates: start: 20100514, end: 20100514

REACTIONS (4)
  - OEDEMA MOUTH [None]
  - PARAESTHESIA [None]
  - TACHYCARDIA [None]
  - VISUAL ACUITY REDUCED [None]
